FAERS Safety Report 5766155-1 (Version None)
Quarter: 2008Q2

REPORT INFORMATION
  Report Type: 
  Country: None (occurrence: None)
  Receive Date: 20080605
  Receipt Date: 20080522
  Transmission Date: 20081010
  Serious: Yes (Hospitalization)
  Sender: FDA-Public Use
  Company Number: 000905

PATIENT
  Age: 45 Year
  Sex: Male
  Weight: 75.6 kg

DRUGS (5)
  1. PLETAL [Suspect]
     Indication: CEREBRAL INFARCTION
     Dosage: 100 MG, BID
     Route: 048
     Dates: start: 20050913
  2. LOXONIN (LOXOPROFEN SODIUM) [Concomitant]
  3. LANSOPRAZOLE [Concomitant]
  4. ALLELOCK (OLOPATADINE HYDROCHLORIDE) [Concomitant]
  5. CANDESARTAN CILEXETIL [Concomitant]

REACTIONS (3)
  - GASTROENTERITIS [None]
  - PAIN [None]
  - VIRAL INFECTION [None]
